FAERS Safety Report 8769011 (Version 7)
Quarter: 2014Q2

REPORT INFORMATION
  Report Type: Spontaneous
  Country: US (occurrence: US)
  Receive Date: 20120904
  Receipt Date: 20140409
  Transmission Date: 20141212
  Serious: Yes (Hospitalization, Disabling, Other)
  Sender: FDA-Public Use
  Company Number: US-009507513-1205USA00046

PATIENT
  Sex: Female

DRUGS (6)
  1. FOSAMAX [Suspect]
     Indication: OSTEOPOROSIS
     Dosage: 70 MG, QW
     Route: 048
     Dates: start: 2000, end: 2011
  2. FOSAMAX [Suspect]
     Indication: OSTEOPOROSIS
     Route: 048
  3. POTASSIUM (UNSPECIFIED) [Concomitant]
     Dosage: 10 MEQ, UNK
     Dates: start: 2002
  4. QUININE SULFATE [Concomitant]
     Indication: MUSCLE SPASMS
     Dosage: 5 G, UNK
     Dates: start: 1970
  5. DIOVAN [Concomitant]
     Indication: HYPERTENSION
     Dosage: 160 MG, UNK
     Dates: start: 200811
  6. CARVEDILOL [Concomitant]
     Indication: HYPERTENSION
     Dosage: UNK
     Dates: start: 2001

REACTIONS (76)
  - Low turnover osteopathy [Not Recovered/Not Resolved]
  - Stress fracture [Not Recovered/Not Resolved]
  - Femur fracture [Not Recovered/Not Resolved]
  - Abasia [Unknown]
  - Ulna fracture [Unknown]
  - Prosthesis implantation [Unknown]
  - Radius fracture [Unknown]
  - Open reduction of fracture [Unknown]
  - Wound [Unknown]
  - Intramedullary rod insertion [Unknown]
  - Tumour excision [Unknown]
  - Skin cancer [Unknown]
  - Cholecystectomy [Unknown]
  - Fall [Unknown]
  - Hip fracture [Unknown]
  - Cardiac failure congestive [Unknown]
  - Hernia repair [Unknown]
  - Prolapse repair [Unknown]
  - Coronary artery bypass [Unknown]
  - Haemorrhoid operation [Unknown]
  - Procedural nausea [Unknown]
  - Inappropriate antidiuretic hormone secretion [Unknown]
  - Hyponatraemia [Unknown]
  - Hypoacusis [Unknown]
  - Renal failure chronic [Not Recovered/Not Resolved]
  - Diverticulitis [Unknown]
  - Cystoscopy [Unknown]
  - Bladder operation [Unknown]
  - Sigmoidoscopy [Unknown]
  - Fall [Unknown]
  - Urinary tract infection [Unknown]
  - Vomiting [Unknown]
  - Pain in extremity [Unknown]
  - Pain in extremity [Unknown]
  - Pneumaturia [Unknown]
  - Atrial fibrillation [Not Recovered/Not Resolved]
  - Enterovesical fistula [Unknown]
  - Hyperlipidaemia [Unknown]
  - Coronary artery disease [Unknown]
  - Urinary tract infection [Unknown]
  - Laceration [Unknown]
  - Ileus [Unknown]
  - Pleural effusion [Unknown]
  - Atelectasis [Unknown]
  - Anaemia [Unknown]
  - Prothrombin time prolonged [Unknown]
  - Hyperglycaemia [Recovering/Resolving]
  - Hyponatraemia [Unknown]
  - Poor dental condition [Unknown]
  - Gait disturbance [Unknown]
  - Fungal infection [Unknown]
  - Peripheral vascular disorder [Unknown]
  - Peripheral pulse decreased [Unknown]
  - Cardiac murmur [Unknown]
  - Cardiac murmur [Unknown]
  - Visual acuity reduced [Unknown]
  - Anaesthetic complication [Unknown]
  - Anxiety [Unknown]
  - Cardiac failure congestive [Unknown]
  - Urinary incontinence [Unknown]
  - Osteoarthritis [Unknown]
  - Hypothyroidism [Unknown]
  - Chronic obstructive pulmonary disease [Unknown]
  - Fall [Unknown]
  - Fall [Unknown]
  - Bladder prolapse [Unknown]
  - Osteopenia [Unknown]
  - Hysterectomy [Unknown]
  - Blood potassium decreased [Unknown]
  - Pain [Unknown]
  - Adverse drug reaction [Unknown]
  - Asthenia [Unknown]
  - Nausea [Unknown]
  - Constipation [Not Recovered/Not Resolved]
  - Blood calcium decreased [Unknown]
  - Muscle spasms [Unknown]
